FAERS Safety Report 23084109 (Version 3)
Quarter: 2023Q4

REPORT INFORMATION
  Report Type: Spontaneous
  Country: BH (occurrence: BH)
  Receive Date: 20231019
  Receipt Date: 20231110
  Transmission Date: 20240110
  Serious: Yes (Death)
  Sender: FDA-Public Use
  Company Number: BH-002147023-NVSC2023BH218524

PATIENT

DRUGS (1)
  1. RUXOLITINIB [Suspect]
     Active Substance: RUXOLITINIB
     Indication: Myelofibrosis
     Dosage: 15 MG, BID
     Route: 048

REACTIONS (2)
  - Chronic kidney disease [Fatal]
  - Septic shock [Fatal]
